FAERS Safety Report 6611784-6 (Version None)
Quarter: 2010Q1

REPORT INFORMATION
  Report Type: 
  Country: None (occurrence: None)
  Receive Date: 20100301
  Receipt Date: 20100301
  Transmission Date: 20100710
  Serious: No
  Sender: FDA-Public Use
  Company Number: None

PATIENT
  Age: 54 Year
  Sex: Male
  Weight: 103.8737 kg

DRUGS (1)
  1. PAXIL CR [Suspect]
     Indication: GENERALISED ANXIETY DISORDER
     Dosage: 25 MG 1 PER DAY
     Dates: start: 20050715, end: 20100228

REACTIONS (2)
  - SLEEP APNOEA SYNDROME [None]
  - WEIGHT INCREASED [None]
